FAERS Safety Report 7100109-8 (Version None)
Quarter: 2010Q4

REPORT INFORMATION
  Report Type: 
  Country: None (occurrence: None)
  Receive Date: 20101112
  Receipt Date: 20100204
  Transmission Date: 20110411
  Serious: No
  Sender: FDA-Public Use
  Company Number: A0838742A

PATIENT
  Age: 73 Year
  Sex: Male

DRUGS (6)
  1. COREG [Suspect]
     Dosage: 6.25MG TWICE PER DAY
     Route: 048
     Dates: start: 20080101
  2. FUROSEMIDE [Concomitant]
  3. LISINOPRIL [Concomitant]
  4. COUMADIN [Concomitant]
  5. DIGOXIN [Concomitant]
  6. RESTASIS [Concomitant]

REACTIONS (3)
  - LACRIMATION INCREASED [None]
  - PHOTOSENSITIVITY REACTION [None]
  - VISUAL FIELD DEFECT [None]
